FAERS Safety Report 14464167 (Version 1)
Quarter: 2018Q1

REPORT INFORMATION
  Report Type: Other
  Country: US (occurrence: US)
  Receive Date: 20180130
  Receipt Date: 20180130
  Transmission Date: 20180509
  Serious: No
  Sender: FDA-Public Use
  Company Number: US-ACORDA-ACO_134105_2017

PATIENT
  Age: 55 Year
  Sex: Female

DRUGS (2)
  1. TYSABRI [Suspect]
     Active Substance: NATALIZUMAB
     Indication: MULTIPLE SCLEROSIS
     Dosage: 300 MG, INFUSED OVER ONE HOUR 1 FOR 4 WEEK
     Route: 042
     Dates: start: 201601, end: 201610
  2. AMPYRA [Suspect]
     Active Substance: DALFAMPRIDINE
     Indication: MULTIPLE SCLEROSIS
     Dosage: 10 MG, Q 12 HRS
     Route: 048

REACTIONS (5)
  - Malaise [Unknown]
  - Bronchitis [Unknown]
  - Cystitis [Unknown]
  - Intervertebral disc protrusion [Unknown]
  - JC polyomavirus test positive [Unknown]

NARRATIVE: CASE EVENT DATE: 20160726
